FAERS Safety Report 11385879 (Version 1)
Quarter: 2015Q3

REPORT INFORMATION
  Report Type: Report from Study
  Country: DE (occurrence: DE)
  Receive Date: 20150817
  Receipt Date: 20150817
  Transmission Date: 20151125
  Serious: Yes (Hospitalization)
  Sender: FDA-Public Use
  Company Number: DE-ROCHE-1620779

PATIENT
  Age: 68 Year
  Sex: Male

DRUGS (11)
  1. RITUXIMAB [Suspect]
     Active Substance: RITUXIMAB
     Route: 042
     Dates: start: 201201
  2. MTX SUPPORT [Suspect]
     Active Substance: CYANOCOBALAMIN\FOLIC ACID
     Route: 065
     Dates: start: 201406
  3. RITUXIMAB [Suspect]
     Active Substance: RITUXIMAB
     Route: 042
     Dates: start: 200811
  4. RITUXIMAB [Suspect]
     Active Substance: RITUXIMAB
     Route: 042
     Dates: start: 201311
  5. MTX SUPPORT [Suspect]
     Active Substance: CYANOCOBALAMIN\FOLIC ACID
     Indication: RHEUMATOID ARTHRITIS
     Route: 065
     Dates: start: 199903
  6. RITUXIMAB [Suspect]
     Active Substance: RITUXIMAB
     Indication: RHEUMATOID ARTHRITIS
     Route: 042
     Dates: start: 200711
  7. RITUXIMAB [Suspect]
     Active Substance: RITUXIMAB
     Route: 042
     Dates: start: 201212
  8. RITUXIMAB [Suspect]
     Active Substance: RITUXIMAB
     Route: 042
     Dates: start: 201503
  9. MTX SUPPORT [Suspect]
     Active Substance: CYANOCOBALAMIN\FOLIC ACID
     Dosage: /MAR/1999,
     Route: 065
     Dates: start: 200801
  10. MTX SUPPORT [Suspect]
     Active Substance: CYANOCOBALAMIN\FOLIC ACID
     Route: 065
     Dates: start: 200811
  11. RITUXIMAB [Suspect]
     Active Substance: RITUXIMAB
     Route: 042
     Dates: start: 201012

REACTIONS (1)
  - Nephrolithiasis [Unknown]

NARRATIVE: CASE EVENT DATE: 20141215
